FAERS Safety Report 5898509-7 (Version None)
Quarter: 2008Q3

REPORT INFORMATION
  Report Type: 
  Country: None (occurrence: None)
  Receive Date: 20080925
  Receipt Date: 20071207
  Transmission Date: 20090109
  Serious: No
  Sender: FDA-Public Use
  Company Number: A0698851A

PATIENT
  Sex: Female

DRUGS (2)
  1. WELLBUTRIN XL [Suspect]
     Indication: DRUG USE FOR UNKNOWN INDICATION
     Route: 065
  2. CYMBALTA [Suspect]
     Indication: DRUG USE FOR UNKNOWN INDICATION
     Dosage: 60MG UNKNOWN
     Route: 065

REACTIONS (1)
  - DEPRESSED MOOD [None]
